FAERS Safety Report 5976915-X (Version None)
Quarter: 2008Q4

REPORT INFORMATION
  Report Type: 
  Country: None (occurrence: None)
  Receive Date: 20081203
  Receipt Date: 20080212
  Transmission Date: 20090506
  Serious: No
  Sender: FDA-Public Use
  Company Number: US-AMGEN-KDL265112

PATIENT
  Sex: Male

DRUGS (2)
  1. ENBREL [Suspect]
     Indication: RHEUMATOID ARTHRITIS
     Route: 058
     Dates: start: 20030803
  2. ARAVA [Concomitant]
     Route: 048
     Dates: start: 20030803

REACTIONS (3)
  - FURUNCLE [None]
  - INSOMNIA [None]
  - PAIN [None]
